FAERS Safety Report 7525414-2 (Version None)
Quarter: 2011Q2

REPORT INFORMATION
  Report Type: 
  Country: None (occurrence: None)
  Receive Date: 20110606
  Receipt Date: 20110601
  Transmission Date: 20111010
  Serious: Yes (Other)
  Sender: FDA-Public Use
  Company Number: US-ROCHE-771976

PATIENT
  Sex: Female

DRUGS (8)
  1. COUMADIN [Concomitant]
  2. LISINOPRIL [Concomitant]
  3. PEGASYS [Suspect]
     Indication: HEPATITIS C
     Dosage: FORM:PRE FILLED SYRINGE
     Route: 058
     Dates: start: 20110414, end: 20110515
  4. COPEGUS [Suspect]
     Indication: HEPATITIS C
     Route: 065
     Dates: start: 20110414
  5. LEVOTHYROXINE SODIUM [Concomitant]
  6. SEROQUEL [Concomitant]
  7. KLONOPIN [Concomitant]
  8. PROZAC [Concomitant]

REACTIONS (7)
  - VAGINAL HAEMORRHAGE [None]
  - PYREXIA [None]
  - INSOMNIA [None]
  - FALL [None]
  - PAIN [None]
  - FATIGUE [None]
  - ABDOMINAL PAIN LOWER [None]
